FAERS Safety Report 8585676-X (Version None)
Quarter: 2012Q3

REPORT INFORMATION
  Report Type: 
  Country: None (occurrence: None)
  Receive Date: 20120810
  Receipt Date: 20120803
  Transmission Date: 20120928
  Serious: Yes (Hospitalization)
  Sender: FDA-Public Use
  Company Number: US-JNJFOC-20120803592

PATIENT
  Sex: Female
  Weight: 47.54 kg

DRUGS (5)
  1. BUDESONIDE [Concomitant]
  2. ELAVIL [Concomitant]
  3. REMICADE [Suspect]
     Indication: CROHN'S DISEASE
     Route: 042
     Dates: start: 20080115
  4. ANTIBIOTICS [Concomitant]
  5. HUMIRA [Concomitant]
     Dates: start: 20081103

REACTIONS (1)
  - CROHN'S DISEASE [None]
